FAERS Safety Report 9120688 (Version 1)
Quarter: 2013Q1

REPORT INFORMATION
  Report Type: Spontaneous
  Country: US (occurrence: US)
  Receive Date: 20130226
  Receipt Date: 20130226
  Transmission Date: 20140127
  Serious: No
  Sender: FDA-Public Use
  Company Number: US-B.I. PHARMACEUTICALS,INC./RIDGEFIELD-2013-BI-04699BP

PATIENT
  Age: 66 Year
  Sex: Male
  Weight: 102 kg

DRUGS (2)
  1. COMBIVENT [Suspect]
     Indication: CHRONIC OBSTRUCTIVE PULMONARY DISEASE
     Dosage: STRENGTH: 20 MCG / 100 MCG; DAILY DOSE: 40 MCG/ 20 MCG
     Route: 055
  2. HYTRIN [Concomitant]
     Indication: PROSTATOMEGALY
     Dosage: 4 MG
     Route: 048

REACTIONS (2)
  - Anxiety [Not Recovered/Not Resolved]
  - Pulmonary congestion [Not Recovered/Not Resolved]
